FAERS Safety Report 5962498-7 (Version None)
Quarter: 2008Q4

REPORT INFORMATION
  Report Type: 
  Country: None (occurrence: None)
  Receive Date: 20081121
  Receipt Date: 20081111
  Transmission Date: 20090506
  Serious: Yes (Hospitalization)
  Sender: FDA-Public Use
  Company Number: US-PFIZER INC-2008087411

PATIENT
  Sex: Male

DRUGS (13)
  1. SUTENT [Suspect]
     Dates: start: 20080401
  2. WARFARIN SODIUM [Suspect]
  3. ALLOPURINOL [Concomitant]
  4. TYLENOL (CAPLET) [Concomitant]
  5. IRON [Concomitant]
  6. IMDUR [Concomitant]
  7. LIPITOR [Concomitant]
  8. LISINOPRIL [Concomitant]
  9. NITROGLYCERIN [Concomitant]
  10. VICODIN [Concomitant]
  11. AMBIEN [Concomitant]
  12. LASIX [Concomitant]
  13. HEPARIN [Concomitant]

REACTIONS (3)
  - DIARRHOEA [None]
  - DISSEMINATED INTRAVASCULAR COAGULATION [None]
  - EPISTAXIS [None]
